FAERS Safety Report 5167015-X (Version None)
Quarter: 2006Q4

REPORT INFORMATION
  Report Type: 
  Country: None (occurrence: None)
  Receive Date: 20061207
  Receipt Date: 20061124
  Transmission Date: 20070319
  Serious: Yes (Other)
  Sender: FDA-Public Use
  Company Number: 2006GB02141

PATIENT
  Age: 53 Year
  Sex: Female
  Weight: 60 kg

DRUGS (2)
  1. ROSUVASTATIN [Suspect]
     Indication: HYPERCHOLESTEROLAEMIA
     Route: 048
     Dates: start: 20060831, end: 20060915
  2. ESTRADIOL INJ [Concomitant]
     Indication: MENOPAUSE
     Route: 048
     Dates: start: 20051114

REACTIONS (2)
  - RESPIRATORY DISORDER [None]
  - SUFFOCATION FEELING [None]
